FAERS Safety Report 6871806-4 (Version None)
Quarter: 2010Q3

REPORT INFORMATION
  Report Type: 
  Country: None (occurrence: None)
  Receive Date: 20100723
  Receipt Date: 20100715
  Transmission Date: 20110219
  Serious: Yes (Hospitalization)
  Sender: FDA-Public Use
  Company Number: B0662594A

PATIENT
  Sex: Male

DRUGS (18)
  1. ALKERAN [Suspect]
     Indication: BONE MARROW TRANSPLANT
     Dosage: 350MG SINGLE DOSE
     Route: 042
     Dates: start: 20100601, end: 20100601
  2. ACUPAN [Suspect]
     Route: 042
     Dates: start: 20100531, end: 20100609
  3. LARGACTIL [Suspect]
     Indication: PRODUCT USED FOR UNKNOWN INDICATION
     Route: 042
     Dates: start: 20100603, end: 20100609
  4. COVERSYL [Suspect]
     Indication: PRODUCT USED FOR UNKNOWN INDICATION
     Route: 048
     Dates: start: 20100602, end: 20100609
  5. BISOPROLOL [Suspect]
     Indication: PRODUCT USED FOR UNKNOWN INDICATION
     Route: 048
     Dates: start: 20100602, end: 20100609
  6. FUROSEMIDE [Suspect]
     Indication: PRODUCT USED FOR UNKNOWN INDICATION
     Route: 048
     Dates: start: 20100602, end: 20100609
  7. NEULASTA [Suspect]
     Indication: PRODUCT USED FOR UNKNOWN INDICATION
     Route: 058
     Dates: start: 20100607, end: 20100607
  8. CEFTRIAXONE SODIUM [Suspect]
     Indication: PRODUCT USED FOR UNKNOWN INDICATION
     Route: 042
     Dates: start: 20100605, end: 20100609
  9. GENTAMICIN [Suspect]
     Indication: PRODUCT USED FOR UNKNOWN INDICATION
     Route: 042
     Dates: start: 20100605, end: 20100609
  10. ZOLPIDEM [Suspect]
     Indication: PRODUCT USED FOR UNKNOWN INDICATION
     Route: 048
     Dates: start: 20100605, end: 20100609
  11. VERAPAMIL [Suspect]
     Indication: PRODUCT USED FOR UNKNOWN INDICATION
     Route: 048
     Dates: end: 20100609
  12. PREVISCAN [Suspect]
     Indication: PROPHYLAXIS
     Route: 048
     Dates: start: 20100101, end: 20100609
  13. KARDEGIC [Suspect]
     Indication: PRODUCT USED FOR UNKNOWN INDICATION
     Route: 048
     Dates: start: 20100101, end: 20100609
  14. ZOPHREN [Concomitant]
     Dates: start: 20100531, end: 20100607
  15. PRIMPERAN TAB [Concomitant]
     Dates: start: 20100531, end: 20100606
  16. REVLIMID [Concomitant]
     Dates: start: 20100101, end: 20100516
  17. DEXAMETHASONE [Concomitant]
     Dates: start: 20100101, end: 20100616
  18. NEUPOGEN [Concomitant]
     Indication: PRODUCT USED FOR UNKNOWN INDICATION
     Dates: start: 20100609, end: 20100609

REACTIONS (11)
  - HYPERCHLORAEMIA [None]
  - HYPERNATRAEMIA [None]
  - HYPOKALAEMIA [None]
  - HYPOMAGNESAEMIA [None]
  - HYPOPHOSPHATAEMIA [None]
  - LUNG DISORDER [None]
  - PANCYTOPENIA [None]
  - POLYURIA [None]
  - PYREXIA [None]
  - RENAL TUBULAR DISORDER [None]
  - RESPIRATORY DISTRESS [None]
